FAERS Safety Report 14854439 (Version 1)
Quarter: 2018Q2

REPORT INFORMATION
  Report Type: Spontaneous
  Country: US (occurrence: US)
  Receive Date: 20180420
  Receipt Date: 20180420
  Transmission Date: 20180711
  Serious: Yes (Hospitalization, Other)
  Sender: FDA-Public Use
  Company Number: None

PATIENT
  Sex: Male

DRUGS (4)
  1. PROGRAF, ATENOLOL, VITAMIN D3, FOLID ACID, CRESTOR, AMITRIPTYLIN, [Concomitant]
  2. BRILINTA, OMEGA 3, SULFASALAZIN, PREDNISONE, ASPIRIN, IMODIUM AD, [Concomitant]
  3. SIMPONI [Suspect]
     Active Substance: GOLIMUMAB
     Indication: RHEUMATOID ARTHRITIS
     Dosage: ?          OTHER FREQUENCY:EVERY 4 WEEKS;?
     Route: 058
     Dates: start: 20150828
  4. WELCHOL, GABAPENTIN, IMURAN PROTONIX. [Concomitant]

REACTIONS (2)
  - Haemorrhage [None]
  - Myocardial infarction [None]
